FAERS Safety Report 13177648 (Version 1)
Quarter: 2017Q1

REPORT INFORMATION
  Report Type: Report from Study
  Country: None (occurrence: FR)
  Receive Date: 20170201
  Receipt Date: 20170201
  Transmission Date: 20170428
  Serious: Yes (Hospitalization)
  Sender: FDA-Public Use
  Company Number: FR-ABBVIE-17P-056-1830502-00

PATIENT
  Age: 62 Year
  Sex: Male

DRUGS (12)
  1. VENETOCLAX [Suspect]
     Active Substance: VENETOCLAX
     Indication: CHRONIC LYMPHOCYTIC LEUKAEMIA
     Route: 048
     Dates: start: 20161216
  2. VENETOCLAX [Suspect]
     Active Substance: VENETOCLAX
     Route: 048
  3. CEFEPIME [Concomitant]
     Active Substance: CEFEPIME HYDROCHLORIDE
     Indication: ESCHERICHIA INFECTION
     Route: 042
     Dates: start: 20161213
  4. VENETOCLAX [Suspect]
     Active Substance: VENETOCLAX
     Route: 048
  5. CLINDAMYCINE (DALACINE) [Concomitant]
     Indication: STAPHYLOCOCCAL INFECTION
     Route: 042
     Dates: start: 20161213
  6. ATOVAQUONE (WELLVONE) [Concomitant]
     Indication: PROPHYLAXIS
     Route: 048
     Dates: start: 20161117
  7. RAMIPRIL. [Concomitant]
     Active Substance: RAMIPRIL
     Indication: HYPERTENSION
     Route: 048
  8. VENETOCLAX [Suspect]
     Active Substance: VENETOCLAX
     Route: 048
  9. CLINDAMYCINE (DALACINE) [Concomitant]
     Indication: LUNG DISORDER
  10. VENETOCLAX [Suspect]
     Active Substance: VENETOCLAX
     Route: 048
     Dates: start: 20170107
  11. CEFEPIME [Concomitant]
     Active Substance: CEFEPIME HYDROCHLORIDE
     Indication: LUNG DISORDER
  12. TINZAPARIN (INNOHEP) [Concomitant]
     Indication: PULMONARY EMBOLISM
     Route: 058
     Dates: start: 20161104

REACTIONS (4)
  - Disease progression [Not Recovered/Not Resolved]
  - Thrombocytopenia [Not Recovered/Not Resolved]
  - Neutropenia [Not Recovered/Not Resolved]
  - Febrile neutropenia [Recovered/Resolved]

NARRATIVE: CASE EVENT DATE: 20161230
